FAERS Safety Report 4696111-6 (Version None)
Quarter: 2005Q2

REPORT INFORMATION
  Report Type: 
  Country: None (occurrence: None)
  Receive Date: 20050620
  Receipt Date: 20050603
  Transmission Date: 20051028
  Serious: Yes (Other)
  Sender: FDA-Public Use
  Company Number: DSA_26578_2005

PATIENT
  Age: 20 Year
  Sex: Male

DRUGS (10)
  1. TEMESTA [Suspect]
     Dosage: 0.5 MG Q DAY
     Dates: start: 20041207, end: 20041207
  2. TEMESTA [Suspect]
     Dosage: 1 MG Q DAY
     Dates: start: 20041206, end: 20041206
  3. TEMESTA [Suspect]
     Dosage: 1.5 MG Q DAY
     Dates: start: 20041203, end: 20041205
  4. TEMESTA [Suspect]
     Dosage: 2.25 MG Q DAY
     Dates: start: 20041202, end: 20041202
  5. TEMESTA [Suspect]
     Dosage: 2.5 MG Q DAY
     Dates: start: 20041123, end: 20041201
  6. ZYPREXA [Suspect]
     Dosage: 15 MG Q DAY
     Dates: start: 20041210, end: 20041220
  7. ZYPREXA [Suspect]
     Dosage: 10 MG Q DAY
     Dates: start: 20041221, end: 20041227
  8. ZYPREXA [Suspect]
     Dosage: 5 MG Q DAY
     Dates: start: 20041228, end: 20050107
  9. ZYPREXA [Suspect]
     Dosage: 10 MG Q DAY
     Dates: start: 20041123, end: 20041209
  10. RISPERDAL [Concomitant]

REACTIONS (2)
  - ELECTROENCEPHALOGRAM ABNORMAL [None]
  - EPILEPSY [None]
